FAERS Safety Report 4335594-8 (Version None)
Quarter: 2004Q2

REPORT INFORMATION
  Report Type: 
  Country: None (occurrence: None)
  Receive Date: 20040409
  Receipt Date: 20040401
  Transmission Date: 20050107
  Serious: Yes (Hospitalization)
  Sender: FDA-Public Use
  Company Number: DE-MERCK-0404DEU00011

PATIENT
  Age: 72 Year
  Sex: Male
  Weight: 73 kg

DRUGS (12)
  1. ASPIRIN [Concomitant]
     Route: 048
     Dates: start: 20030101, end: 20031106
  2. ASPIRIN [Concomitant]
     Route: 048
     Dates: start: 20031118, end: 20040401
  3. ZETIA [Suspect]
     Indication: HYPERCHOLESTEROLAEMIA
     Route: 048
     Dates: start: 20030127, end: 20031106
  4. ZETIA [Suspect]
     Route: 048
     Dates: start: 20031212, end: 20040318
  5. HYDROCHLOROTHIAZIDE [Concomitant]
     Indication: HYPERTENSION
     Route: 048
     Dates: start: 20030101, end: 20031106
  6. HYDROCHLOROTHIAZIDE [Concomitant]
     Route: 048
     Dates: start: 20031118, end: 20040401
  7. METFORMIN HYDROCHLORIDE [Concomitant]
     Indication: DIABETES MELLITUS
     Route: 048
     Dates: start: 20030101, end: 20031106
  8. METOPROLOL [Concomitant]
     Indication: HYPERTENSION
     Route: 048
     Dates: start: 20030101, end: 20031106
  9. METOPROLOL [Concomitant]
     Route: 048
     Dates: start: 20031118, end: 20040401
  10. RAMIPRIL [Concomitant]
     Indication: HYPERTENSION
     Route: 048
     Dates: start: 20030101, end: 20031106
  11. RAMIPRIL [Concomitant]
     Route: 048
     Dates: start: 20031118, end: 20040401
  12. REPAGLINIDE [Concomitant]
     Indication: DIABETES MELLITUS
     Route: 048
     Dates: start: 20031118, end: 20040401

REACTIONS (4)
  - BLOOD AMYLASE INCREASED [None]
  - CEREBROVASCULAR ACCIDENT [None]
  - LIPASE INCREASED [None]
  - PANCREATITIS [None]
